FAERS Safety Report 11145655 (Version 1)
Quarter: 2015Q2

REPORT INFORMATION
  Report Type: Spontaneous
  Country: US (occurrence: None)
  Receive Date: 20150527
  Receipt Date: 20150527
  Transmission Date: 20150821
  Serious: Yes (Other)
  Sender: FDA-Public Use
  Company Number: None

PATIENT
  Age: 71 Year
  Sex: Male
  Weight: 122.93 kg

DRUGS (2)
  1. CABAZITAXEL [Suspect]
     Active Substance: CABAZITAXEL
     Indication: PROSTATE CANCER
     Dosage: 6 MG/M2  WEEKLY  INTRAVENOUS?QD
     Route: 042
     Dates: start: 20150401, end: 20150519
  2. IMRT [Suspect]
     Active Substance: RADIATION THERAPY
     Indication: PROSTATE CANCER
     Dates: start: 20150331, end: 20150521

REACTIONS (1)
  - Neutrophil count decreased [None]

NARRATIVE: CASE EVENT DATE: 20150519
